FAERS Safety Report 9515374 (Version 1)
Quarter: 2013Q1

REPORT INFORMATION
  Report Type: Spontaneous
  Country: US (occurrence: None)
  Receive Date: 20130305
  Receipt Date: 20130305
  Transmission Date: 20140127
  Serious: Yes (Hospitalization)
  Sender: FDA-Public Use
  Company Number: 163-21880-12112660

PATIENT
  Age: 71 Year
  Sex: Female

DRUGS (10)
  1. REVLIMID [Suspect]
     Indication: PLASMA CELL MYELOMA
     Dosage: 25 MG, 21 IN 21 D, PO
     Route: 048
     Dates: start: 20120726
  2. ASPIRIN CHILDREN (ACETYLSALICYLIC ACID) (UNKNOWN) [Concomitant]
  3. CALCIUM 600 (UNKNOWN) [Concomitant]
  4. VITAMIN D3 (CALECALCIFEROL) (UNKNOWN) [Concomitant]
  5. DEPAKOTE (VALPROATE SEMISODIUM) (UNKNOWN) [Concomitant]
  6. PROZAC (FLUOXETINE HYDROCHLORIDE) (UNKNOWN) [Concomitant]
  7. FUROSEMIDE (FUROSEMIDE) (UNKNOWN) [Concomitant]
  8. METOPROLOL (METOPROLOL) (UNKNOWN) [Concomitant]
  9. MVI (MVI) (UNKNOWN) [Concomitant]
  10. RISPERDAL M-TAB (RISPERIDONE) (UNKNOWN) [Concomitant]

REACTIONS (1)
  - Full blood count decreased [None]
